FAERS Safety Report 4448831-6 (Version None)
Quarter: 2004Q3

REPORT INFORMATION
  Report Type: 
  Country: None (occurrence: None)
  Receive Date: 20040909
  Receipt Date: 20040827
  Transmission Date: 20050211
  Serious: Yes (Disabling, Other)
  Sender: FDA-Public Use
  Company Number: 200407879

PATIENT
  Age: 56 Year
  Sex: Female

DRUGS (1)
  1. BOTOX [Suspect]
     Indication: FACIAL SPASM
     Dates: start: 19930101, end: 19961201

REACTIONS (7)
  - DEPRESSION [None]
  - DROOLING [None]
  - DRUG EFFECT DECREASED [None]
  - DYSARTHRIA [None]
  - FACIAL PALSY [None]
  - KERATOCONJUNCTIVITIS SICCA [None]
  - LAGOPHTHALMOS [None]
